FAERS Safety Report 20882970 (Version 1)
Quarter: 2022Q2

REPORT INFORMATION
  Report Type: Spontaneous
  Country: US (occurrence: None)
  Receive Date: 20220526
  Receipt Date: 20220526
  Transmission Date: 20220721
  Serious: No
  Sender: FDA-Public Use
  Company Number: None

PATIENT
  Age: 68 Year
  Sex: Female

DRUGS (7)
  1. INGREZZA [Suspect]
     Active Substance: VALBENAZINE
     Indication: Tardive dyskinesia
     Dosage: FREQUENCY : DAILY;?
     Route: 048
     Dates: start: 20220329
  2. DULOXETINE [Concomitant]
     Active Substance: DULOXETINE
  3. LITHIUM ER 300MG [Concomitant]
  4. ROSUVASTATIN [Concomitant]
     Active Substance: ROSUVASTATIN
  5. MELOXICAM [Concomitant]
     Active Substance: MELOXICAM
  6. SERTRALINE [Concomitant]
     Active Substance: SERTRALINE HYDROCHLORIDE
  7. TELMISARTAN [Concomitant]
     Active Substance: TELMISARTAN

REACTIONS (3)
  - Headache [None]
  - Gingival pain [None]
  - Bruxism [None]

NARRATIVE: CASE EVENT DATE: 20220526
